FAERS Safety Report 17594754 (Version 1)
Quarter: 2020Q1

REPORT INFORMATION
  Report Type: Report from Study
  Country: None (occurrence: GB)
  Receive Date: 20200327
  Receipt Date: 20200327
  Transmission Date: 20200409
  Serious: Yes (Hospitalization, Other)
  Sender: FDA-Public Use
  Company Number: GB-ABBVIE-19P-167-2869162-00

PATIENT
  Age: 15 Year
  Sex: Female

DRUGS (71)
  1. HUMIRA [Suspect]
     Active Substance: ADALIMUMAB
     Indication: CROHN^S DISEASE
     Route: 058
     Dates: start: 20131209, end: 20180430
  2. NUTRISON MULTIFIBRE [Concomitant]
     Indication: ENTERAL NUTRITION
     Dosage: DOSE: 300-1020 ML
     Route: 050
     Dates: start: 20190628, end: 20190630
  3. ONDANSETRON [Concomitant]
     Active Substance: ONDANSETRON
     Indication: NAUSEA
     Route: 048
     Dates: start: 20190308, end: 20190311
  4. SODIUM PICOSULPHATE [Concomitant]
     Active Substance: SODIUM PICOSULFATE
     Route: 048
     Dates: start: 20190315, end: 20190320
  5. DICYCLOVERINE [Concomitant]
     Active Substance: DICYCLOMINE HYDROCHLORIDE
     Indication: CROHN^S DISEASE
     Route: 048
     Dates: start: 20141201
  6. NEOCATE JUNIOR [Concomitant]
     Indication: CROHN^S DISEASE
     Route: 050
     Dates: start: 20190304, end: 20190616
  7. SODIUM PHOSPHATE [Concomitant]
     Active Substance: SODIUM PHOSPHATE
     Indication: BOWEL PREPARATION
     Route: 054
     Dates: start: 20190314, end: 20190314
  8. FUROSEMIDE. [Concomitant]
     Active Substance: FUROSEMIDE
     Indication: PULMONARY OEDEMA
     Dosage: START DOSE
     Route: 042
     Dates: start: 20190620, end: 20190620
  9. FUROSEMIDE. [Concomitant]
     Active Substance: FUROSEMIDE
     Dosage: START DOSE
     Route: 042
     Dates: start: 20190621, end: 20190621
  10. CYCLIZINE [Concomitant]
     Active Substance: CYCLIZINE
     Indication: VOMITING
     Route: 048
     Dates: start: 20190728, end: 20190728
  11. MACROGOL [Concomitant]
     Active Substance: POLYETHYLENE GLYCOLS
     Indication: CONSTIPATION
     Dosage: 1-2 SACHETS
     Route: 048
     Dates: start: 20190301, end: 20190411
  12. METHOTREXATE. [Suspect]
     Active Substance: METHOTREXATE
     Indication: CROHN^S DISEASE
     Route: 048
     Dates: start: 20181018
  13. SODIUM FEREDETATE [Concomitant]
     Active Substance: SODIUM FEREDETATE
     Indication: MINERAL SUPPLEMENTATION
     Route: 048
     Dates: start: 20140425, end: 20140716
  14. SODIUM PICOSULPHATE [Concomitant]
     Active Substance: SODIUM PICOSULFATE
     Indication: LAXATIVE SUPPORTIVE CARE
     Route: 048
     Dates: start: 20150811, end: 20190220
  15. SODIUM PICOSULPHATE [Concomitant]
     Active Substance: SODIUM PICOSULFATE
     Route: 048
     Dates: start: 20190709
  16. DOMPERIDONE MALEATE [Concomitant]
     Active Substance: DOMPERIDONE MALEATE
     Indication: NAUSEA
     Route: 048
     Dates: start: 20190308, end: 20190618
  17. TRAMADOL. [Concomitant]
     Active Substance: TRAMADOL
     Route: 048
     Dates: start: 20190707, end: 20190707
  18. CO-AMOXICLAV [Concomitant]
     Active Substance: AMOXICILLIN\CLAVULANATE POTASSIUM
     Indication: PROPHYLAXIS
     Route: 042
     Dates: start: 20190618, end: 20190620
  19. DIAZEPAM. [Concomitant]
     Active Substance: DIAZEPAM
     Indication: AGITATION
  20. SODIUM CHLORIDE/ELCTROLYTES [Concomitant]
     Indication: FLUID REPLACEMENT
     Dosage: 40-101.6 ML (MILLILITER)
     Route: 041
     Dates: start: 20190618, end: 20190629
  21. CYCLIZINE [Concomitant]
     Active Substance: CYCLIZINE
     Indication: NAUSEA
     Route: 048
     Dates: start: 20190720, end: 20190720
  22. ONDANSETRON [Concomitant]
     Active Substance: ONDANSETRON
     Route: 048
     Dates: start: 20190701
  23. DOMPERIDONE MALEATE [Concomitant]
     Active Substance: DOMPERIDONE MALEATE
     Indication: GASTROOESOPHAGEAL REFLUX DISEASE
  24. PIPERACILLIN SODIUM/TAZOBACTAM SODIUM [Concomitant]
     Active Substance: PIPERACILLIN SODIUM\TAZOBACTAM SODIUM
     Indication: PNEUMONIA
     Route: 042
     Dates: start: 20190620, end: 20190625
  25. RANITIDINE. [Concomitant]
     Active Substance: RANITIDINE
     Indication: GASTRITIS
     Route: 048
     Dates: start: 20190626
  26. ONDANSETRON [Concomitant]
     Active Substance: ONDANSETRON
     Route: 042
     Dates: start: 20190619, end: 20190625
  27. PARACETAMOL [Concomitant]
     Active Substance: ACETAMINOPHEN
     Indication: PAIN
     Route: 048
     Dates: start: 20181005, end: 20190220
  28. PARACETAMOL [Concomitant]
     Active Substance: ACETAMINOPHEN
     Route: 042
     Dates: start: 20190302, end: 20190314
  29. KLEAN-PREP [Concomitant]
     Active Substance: ELECTROLYTES NOS\POLYETHYLENE GLYCOL 3350
     Indication: CONSTIPATION
     Route: 048
     Dates: start: 20190315, end: 20190315
  30. SODIUM PHOSPHATE [Concomitant]
     Active Substance: SODIUM PHOSPHATE
     Indication: GASTROINTESTINAL MOTILITY DISORDER
     Dosage: 100-115 ML (MILLILITER) ?ENEMA
     Route: 054
     Dates: start: 20190703, end: 20190711
  31. TRAMADOL. [Concomitant]
     Active Substance: TRAMADOL
     Indication: PAIN MANAGEMENT
     Route: 041
     Dates: start: 20190302, end: 20190314
  32. TRAMADOL. [Concomitant]
     Active Substance: TRAMADOL
     Route: 048
     Dates: start: 20190417, end: 20190618
  33. CLONIDINE. [Concomitant]
     Active Substance: CLONIDINE
     Indication: ANXIETY
     Dosage: SINGLE DOSE
     Route: 048
     Dates: start: 20190618, end: 20190618
  34. FOLIC ACID. [Concomitant]
     Active Substance: FOLIC ACID
     Indication: VITAMIN SUPPLEMENTATION
     Route: 048
     Dates: start: 20181018, end: 20190615
  35. FOLIC ACID. [Concomitant]
     Active Substance: FOLIC ACID
     Dosage: FREQUENCY: ONCE WEEKLY NOT ON SAME DAY AS METHOTREXATE
     Route: 048
     Dates: start: 20190629
  36. MOVICOL [Concomitant]
     Active Substance: POLYETHYLENE GLYCOL 3350\POTASSIUM CHLORIDE\SODIUM BICARBONATE\SODIUM CHLORIDE
     Indication: LAXATIVE SUPPORTIVE CARE
     Route: 048
     Dates: start: 20150811, end: 20190228
  37. PARACETAMOL [Concomitant]
     Active Substance: ACETAMINOPHEN
     Dosage: 750-800 MG
     Route: 048
     Dates: start: 20190227, end: 20190302
  38. PARACETAMOL [Concomitant]
     Active Substance: ACETAMINOPHEN
     Route: 042
     Dates: start: 20190618, end: 20190620
  39. SODIUM PICOSULPHATE [Concomitant]
     Active Substance: SODIUM PICOSULFATE
     Indication: ENDOSCOPY
     Route: 048
     Dates: start: 20190228, end: 20190228
  40. SODIUM PICOSULPHATE [Concomitant]
     Active Substance: SODIUM PICOSULFATE
     Route: 048
     Dates: start: 20190320, end: 20190617
  41. SODIUM PICOSULPHATE [Concomitant]
     Active Substance: SODIUM PICOSULFATE
     Route: 048
     Dates: start: 20190706, end: 20190708
  42. GABAPENTIN. [Concomitant]
     Active Substance: GABAPENTIN
     Route: 048
     Dates: start: 20190321, end: 20190618
  43. BISACODYL. [Concomitant]
     Active Substance: BISACODYL
     Indication: CONSTIPATION
     Route: 048
     Dates: start: 20190327, end: 20190407
  44. KLEAN-PREP [Concomitant]
     Active Substance: ELECTROLYTES NOS\POLYETHYLENE GLYCOL 3350
     Route: 048
     Dates: start: 20190710, end: 20190710
  45. TRAMADOL. [Concomitant]
     Active Substance: TRAMADOL
     Route: 048
     Dates: start: 20190315, end: 20190407
  46. MOVICOL [Concomitant]
     Active Substance: POLYETHYLENE GLYCOL 3350\POTASSIUM CHLORIDE\SODIUM BICARBONATE\SODIUM CHLORIDE
     Route: 048
     Dates: start: 20190711, end: 20190715
  47. PARACETAMOL [Concomitant]
     Active Substance: ACETAMINOPHEN
     Route: 048
     Dates: start: 20190407, end: 20190618
  48. PARACETAMOL [Concomitant]
     Active Substance: ACETAMINOPHEN
     Route: 042
     Dates: start: 20190620, end: 20190626
  49. PARACETAMOL [Concomitant]
     Active Substance: ACETAMINOPHEN
     Route: 048
     Dates: start: 20190626
  50. MELATONIN [Concomitant]
     Active Substance: MELATONIN
     Indication: SLEEP DISORDER THERAPY
     Dosage: DOSE: 2-4 MG
     Route: 048
     Dates: start: 20190305
  51. GABAPENTIN. [Concomitant]
     Active Substance: GABAPENTIN
     Indication: PAIN MANAGEMENT
     Route: 048
     Dates: start: 20190305, end: 20190321
  52. KLEAN-PREP [Concomitant]
     Active Substance: ELECTROLYTES NOS\POLYETHYLENE GLYCOL 3350
     Route: 048
     Dates: start: 20190317, end: 20190317
  53. SENNA [Concomitant]
     Active Substance: SENNA LEAF\SENNOSIDES\SENNOSIDES A AND B
     Route: 048
     Dates: start: 20190701, end: 20190704
  54. DIAZEPAM. [Concomitant]
     Active Substance: DIAZEPAM
     Indication: ANXIETY
     Dosage: SINGLE DOSE
     Route: 040
     Dates: start: 20190620, end: 20190620
  55. CLEXANE [Concomitant]
     Active Substance: ENOXAPARIN SODIUM
     Indication: PROPHYLAXIS
     Route: 058
     Dates: start: 20190618, end: 20190625
  56. CHLORPHENAMINE MALEATE [Concomitant]
     Active Substance: CHLORPHENIRAMINE MALEATE
     Indication: PRURITUS
     Route: 048
     Dates: start: 20190704
  57. MOVICOL [Concomitant]
     Active Substance: POLYETHYLENE GLYCOL 3350\POTASSIUM CHLORIDE\SODIUM BICARBONATE\SODIUM CHLORIDE
     Route: 048
     Dates: start: 20190608, end: 20190611
  58. NUTRISON MULTIFIBRE [Concomitant]
     Dosage: DOSE: 1800-2400 ML
     Route: 050
     Dates: start: 20190701
  59. PARACETAMOL [Concomitant]
     Active Substance: ACETAMINOPHEN
     Route: 048
     Dates: start: 20190314, end: 20190327
  60. SODIUM PICOSULPHATE [Concomitant]
     Active Substance: SODIUM PICOSULFATE
     Route: 048
     Dates: start: 20190304, end: 20190308
  61. DOMPERIDONE MALEATE [Concomitant]
     Active Substance: DOMPERIDONE MALEATE
     Indication: VOMITING
  62. DOCUSATE SODIUM. [Concomitant]
     Active Substance: DOCUSATE SODIUM
     Indication: CONSTIPATION
     Route: 048
     Dates: start: 20190226, end: 20190304
  63. SENNA [Concomitant]
     Active Substance: SENNA LEAF\SENNOSIDES\SENNOSIDES A AND B
     Indication: CONSTIPATION
     Route: 048
     Dates: start: 20190407, end: 20190617
  64. TRAMADOL. [Concomitant]
     Active Substance: TRAMADOL
     Route: 048
     Dates: start: 20190407, end: 20190417
  65. DIAZEPAM. [Concomitant]
     Active Substance: DIAZEPAM
     Indication: ADVERSE DRUG REACTION
  66. HUMIRA [Suspect]
     Active Substance: ADALIMUMAB
     Route: 058
     Dates: start: 20180507, end: 20190325
  67. AZATHIOPRINE. [Suspect]
     Active Substance: AZATHIOPRINE
     Indication: CROHN^S DISEASE
     Route: 048
     Dates: start: 20121011, end: 20181011
  68. ONDANSETRON [Concomitant]
     Active Substance: ONDANSETRON
     Indication: VOMITING
     Route: 048
     Dates: start: 20190311, end: 20190618
  69. SODIUM PICOSULPHATE [Concomitant]
     Active Substance: SODIUM PICOSULFATE
     Route: 048
     Dates: start: 20190308, end: 20190314
  70. SODIUM PHOSPHATE [Concomitant]
     Active Substance: SODIUM PHOSPHATE
     Indication: CONSTIPATION
     Dosage: START DOSE
     Route: 054
     Dates: start: 20190228, end: 20190228
  71. DICYCLOVERINE [Concomitant]
     Active Substance: DICYCLOMINE HYDROCHLORIDE
     Indication: CROHN^S DISEASE
     Route: 048
     Dates: start: 20141201

REACTIONS (6)
  - Constipation [Recovered/Resolved]
  - Nausea [Recovered/Resolved]
  - Vomiting [Recovered/Resolved]
  - Staphylococcus test positive [Not Recovered/Not Resolved]
  - Abdominal pain [Recovered/Resolved]
  - Postoperative wound infection [Not Recovered/Not Resolved]

NARRATIVE: CASE EVENT DATE: 20190711
